FAERS Safety Report 7324220-1 (Version None)
Quarter: 2011Q1

REPORT INFORMATION
  Report Type: 
  Country: None (occurrence: None)
  Receive Date: 20110301
  Receipt Date: 20110223
  Transmission Date: 20110831
  Serious: Yes (Hospitalization, Other)
  Sender: FDA-Public Use
  Company Number: US-ABBOTT-11P-163-0707581-00

PATIENT
  Sex: Female
  Weight: 59.02 kg

DRUGS (9)
  1. LEFLUNOMIDE [Concomitant]
     Indication: RHEUMATOID ARTHRITIS
  2. METHOTREXATE [Concomitant]
     Indication: RHEUMATOID ARTHRITIS
  3. PERCOCET [Concomitant]
     Indication: PAIN
  4. SULFASALAZINE [Concomitant]
     Indication: RHEUMATOID ARTHRITIS
  5. FOLIC ACID [Concomitant]
     Indication: VITAMIN SUPPLEMENTATION
  6. EXFORGE [Concomitant]
     Indication: HYPERTENSION
  7. AMITRIPTYLINE HCL [Concomitant]
     Indication: INSOMNIA
  8. HUMIRA [Suspect]
     Indication: RHEUMATOID ARTHRITIS
  9. BLACK COHOSH [Concomitant]
     Indication: HOT FLUSH

REACTIONS (13)
  - RED BLOOD CELL SEDIMENTATION RATE INCREASED [None]
  - RHEUMATOID FACTOR INCREASED [None]
  - FALL [None]
  - ABASIA [None]
  - NERVE COMPRESSION [None]
  - RHEUMATOID ARTHRITIS [None]
  - HEAD INJURY [None]
  - MUSCLE SPASMS [None]
  - INTERVERTEBRAL DISC DISPLACEMENT [None]
  - OEDEMA PERIPHERAL [None]
  - NECK PAIN [None]
  - JOINT STIFFNESS [None]
  - JOINT SWELLING [None]
